FAERS Safety Report 16090611 (Version 2)
Quarter: 2019Q1

REPORT INFORMATION
  Report Type: Spontaneous
  Country: NL (occurrence: NL)
  Receive Date: 20190319
  Receipt Date: 20190320
  Transmission Date: 20190418
  Serious: Yes (Life-Threatening, Hospitalization)
  Sender: FDA-Public Use
  Company Number: NL-PFIZER INC-2019115199

PATIENT
  Age: 34 Year
  Sex: Male
  Weight: 104 kg

DRUGS (4)
  1. ALUTARD SQ GRAESER/- BAEUME/- KRAEUTER [Concomitant]
     Dosage: 1 DF, ACCORDING TO PHYSICIAN
  2. SALAZOPYRINE [Suspect]
     Active Substance: SULFASALAZINE
     Indication: SPONDYLOARTHROPATHY
     Dosage: 1000 MG, 1X/DAY
     Route: 050
     Dates: start: 20190107, end: 20190205
  3. DICLOFENAC SODIUM. [Concomitant]
     Active Substance: DICLOFENAC SODIUM
     Dosage: 150 MG, UNK
     Route: 048
  4. D-CURA [Concomitant]
     Dosage: 50000 IU, MONTHLY

REACTIONS (7)
  - Chills [Recovering/Resolving]
  - Pyrexia [Recovering/Resolving]
  - Eosinophilia [Recovering/Resolving]
  - Drug reaction with eosinophilia and systemic symptoms [Recovering/Resolving]
  - Tachypnoea [Recovering/Resolving]
  - Dyspnoea [Recovering/Resolving]
  - Rash maculo-papular [Recovering/Resolving]

NARRATIVE: CASE EVENT DATE: 20190128
